FAERS Safety Report 25606677 (Version 2)
Quarter: 2025Q3

REPORT INFORMATION
  Report Type: Spontaneous
  Country: AR (occurrence: AR)
  Receive Date: 20250725
  Receipt Date: 20250904
  Transmission Date: 20251021
  Serious: No
  Sender: PFIZER
  Company Number: AR-PFIZER INC-202500146379

PATIENT
  Age: 10 Year
  Sex: Male

DRUGS (1)
  1. GENOTROPIN [Suspect]
     Active Substance: SOMATROPIN
     Indication: Foetal growth restriction
     Dosage: 1 MG, DAILY (7 TIMES PER WEEK)
     Dates: start: 20250702

REACTIONS (1)
  - Device defective [Not Recovered/Not Resolved]

NARRATIVE: CASE EVENT DATE: 20250714
